FAERS Safety Report 24704631 (Version 1)
Quarter: 2024Q4

REPORT INFORMATION
  Report Type: Spontaneous
  Country: US (occurrence: US)
  Receive Date: 20241206
  Receipt Date: 20241206
  Transmission Date: 20250115
  Serious: No
  Sender: TENSHI KAIZEN PRIVATE LIMITED
  Company Number: US-TENSHI KAIZEN PRIVATE LIMITED-2024TK000114

PATIENT
  Age: 80 Year
  Sex: Female
  Weight: 72.6 kg

DRUGS (1)
  1. LORATADINE [Suspect]
     Active Substance: LORATADINE
     Indication: Hypersensitivity
     Dosage: 1 WAFER PER DAY
     Route: 048
     Dates: start: 20241001, end: 20241020

REACTIONS (3)
  - Drug ineffective [Unknown]
  - Product after taste [Unknown]
  - Product taste abnormal [Unknown]
